FAERS Safety Report 23661499 (Version 2)
Quarter: 2024Q2

REPORT INFORMATION
  Report Type: Spontaneous
  Country: DE (occurrence: DE)
  Receive Date: 20240322
  Receipt Date: 20240403
  Transmission Date: 20240716
  Serious: Yes (Hospitalization)
  Sender: FDA-Public Use
  Company Number: DE-ASTELLAS-2024US008543

PATIENT
  Sex: Male

DRUGS (10)
  1. XTANDI [Suspect]
     Active Substance: ENZALUTAMIDE
     Indication: Prostate cancer metastatic
     Dosage: UNK UNK, UNKNOWN FREQ.
     Route: 065
  2. ASPIRIN [Concomitant]
     Active Substance: ASPIRIN
     Indication: Product used for unknown indication
     Dosage: 100 MG, ONCE DAILY, (0-0-1)
     Route: 048
  3. AMLODIPINE BESYLATE [Concomitant]
     Active Substance: AMLODIPINE BESYLATE
     Indication: Product used for unknown indication
     Dosage: 5 MG, TWICE DAILY, (1-01)
     Route: 048
  4. ATORVASTATIN [Concomitant]
     Active Substance: ATORVASTATIN
     Indication: Product used for unknown indication
     Dosage: 10 MG, ONCE DAILY, (0-0-0-1)
     Route: 048
  5. DOXAZOSIN [Concomitant]
     Active Substance: DOXAZOSIN MESYLATE
     Indication: Product used for unknown indication
     Dosage: 4 MG, TWICE DAILY, (1-0-1)
     Route: 048
  6. FUROSEMIDE [Concomitant]
     Active Substance: FUROSEMIDE
     Indication: Product used for unknown indication
     Dosage: 0.5 DF, ONCE DAILY (40 MG, 0.5-0-0)
     Route: 048
  7. METAMIZOLE [Concomitant]
     Active Substance: METAMIZOLE
     Indication: Product used for unknown indication
     Dosage: 2 DF, 4 TIMES DAILY (500 MG,  2-2-2-2)
     Route: 048
  8. PANTOPRAZOLE [Concomitant]
     Active Substance: PANTOPRAZOLE
     Indication: Product used for unknown indication
     Dosage: 40 MG, ONCE DAILY, (1-0-0)
     Route: 048
  9. NPH INSULIN [Concomitant]
     Active Substance: INSULIN BEEF
     Indication: Diabetes mellitus
     Dosage: UNK UNK, UNKNOWN FREQ (NPH INSULIN 0-0-0-8)
     Route: 058
  10. INSULIN HUMAN [Concomitant]
     Active Substance: INSULIN HUMAN
     Indication: Product used for unknown indication
     Dosage: UNK UNK, UNKNOWN FREQ (HUMINSULIN NORMAL 11-11-11)
     Route: 058

REACTIONS (11)
  - Abdominal pain [Recovering/Resolving]
  - Pleural effusion [Unknown]
  - Condition aggravated [Unknown]
  - Pain [Unknown]
  - Klebsiella urinary tract infection [Unknown]
  - Dizziness postural [Unknown]
  - Flank pain [Unknown]
  - Fatigue [Unknown]
  - Weight decreased [Unknown]
  - Pruritus [Unknown]
  - Decreased appetite [Unknown]
